FAERS Safety Report 16588008 (Version 2)
Quarter: 2019Q3

REPORT INFORMATION
  Report Type: Spontaneous
  Country: RS (occurrence: RS)
  Receive Date: 20190717
  Receipt Date: 20190718
  Transmission Date: 20191004
  Serious: Yes (Other)
  Sender: FDA-Public Use
  Company Number: RS-ELI_LILLY_AND_COMPANY-RS201906000731

PATIENT
  Age: 53 Year
  Sex: Male

DRUGS (3)
  1. CDDP [Concomitant]
     Active Substance: CISPLATIN
     Indication: HEAD AND NECK CANCER
     Dosage: UNK
     Dates: start: 20160405
  2. ERBITUX [Suspect]
     Active Substance: CETUXIMAB
     Indication: HEAD AND NECK CANCER
     Dosage: UNK, UNKNOWN
     Route: 065
     Dates: start: 20160621, end: 20160818
  3. 5-FU [FLUOROURACIL] [Concomitant]
     Active Substance: FLUOROURACIL
     Indication: HEAD AND NECK CANCER
     Dosage: UNK
     Dates: start: 20160405

REACTIONS (1)
  - Lymphadenectomy [Unknown]

NARRATIVE: CASE EVENT DATE: 20160718
